FAERS Safety Report 7544432-1 (Version None)
Quarter: 2011Q2

REPORT INFORMATION
  Report Type: 
  Country: None (occurrence: None)
  Receive Date: 20110613
  Receipt Date: 20090708
  Transmission Date: 20111010
  Serious: Yes (Death, Life-Threatening, Other)
  Sender: FDA-Public Use
  Company Number: PHHY2008JP32269

PATIENT
  Sex: Male

DRUGS (8)
  1. ZOLEDRONIC ACID [Suspect]
     Dosage: 4 MG DILUTED TO 100 ML
     Route: 042
     Dates: start: 20071011, end: 20071017
  2. DUROTEP JANSSEN [Concomitant]
     Dosage: 2.5 MG, UNK
     Dates: start: 20071003, end: 20080328
  3. OXYCONTIN [Concomitant]
     Dosage: 20 MG, UNK
     Route: 048
     Dates: start: 20070817, end: 20071003
  4. FAMOTIDINE [Concomitant]
     Dosage: 20 MG, UNK
     Route: 048
     Dates: start: 20070816, end: 20080328
  5. ZOLEDRONIC ACID [Suspect]
     Indication: LUNG NEOPLASM MALIGNANT
     Dosage: 4 MG, QMO
     Route: 042
     Dates: start: 20070817
  6. ETODOLAC [Concomitant]
     Dosage: 200 MG, UNK
     Route: 048
     Dates: start: 20070816, end: 20080328
  7. BETAMETHASONE [Concomitant]
     Dosage: 1 MG, UNK
     Route: 048
     Dates: end: 20080328
  8. GEMCITABINE [Concomitant]
     Dosage: 1000 MG, UNK
     Dates: start: 20070929, end: 20071017

REACTIONS (5)
  - GENERAL PHYSICAL HEALTH DETERIORATION [None]
  - ALTERED STATE OF CONSCIOUSNESS [None]
  - CONDITION AGGRAVATED [None]
  - RESPIRATORY FAILURE [None]
  - PULMONARY EMBOLISM [None]
